FAERS Safety Report 24086102 (Version 3)
Quarter: 2024Q4

REPORT INFORMATION
  Report Type: Spontaneous
  Country: CA (occurrence: CA)
  Receive Date: 20240712
  Receipt Date: 20241118
  Transmission Date: 20250114
  Serious: Yes (Other)
  Sender: PFIZER
  Company Number: CA-PFIZER INC-202300442832

PATIENT
  Age: 30 Year
  Sex: Female
  Weight: 97 kg

DRUGS (4)
  1. RUXIENCE [Suspect]
     Active Substance: RITUXIMAB-PVVR
     Indication: Granulomatosis with polyangiitis
     Dosage: 1 G, DAY 1 AND 15 (FIRST DOSE AT HOSPITAL)
     Route: 042
     Dates: start: 20231211
  2. RUXIENCE [Suspect]
     Active Substance: RITUXIMAB-PVVR
     Indication: Microscopic polyangiitis
     Dosage: 500 MG, ON DAY 1 AND DAY 15, THEN EVERY 6 MONTHS LONG-TERM (SUBSEQUENT DAY 1)
     Route: 042
     Dates: start: 20240626, end: 20240626
  3. RUXIENCE [Suspect]
     Active Substance: RITUXIMAB-PVVR
     Dosage: 500 MG, INCOMPLETE, DAY 15 (ON DAY 1 AND DAY 15, THEN EVERY 6 MONTHS)
     Route: 042
     Dates: start: 20240709
  4. CORTISONE [Concomitant]
     Active Substance: CORTISONE
     Dosage: 1 DF

REACTIONS (9)
  - Nausea [Recovering/Resolving]
  - Dizziness [Recovering/Resolving]
  - Hot flush [Recovering/Resolving]
  - Hypoaesthesia [Recovering/Resolving]
  - Ear infection [Unknown]
  - Off label use [Unknown]
  - Off label use [Unknown]
  - Off label use [Unknown]
  - Intentional product use issue [Unknown]

NARRATIVE: CASE EVENT DATE: 20231211
